FAERS Safety Report 4307915-3 (Version None)
Quarter: 2004Q1

REPORT INFORMATION
  Report Type: 
  Country: None (occurrence: None)
  Receive Date: 20040301
  Receipt Date: 20020326
  Transmission Date: 20041129
  Serious: No
  Sender: FDA-Public Use
  Company Number: US-BRISTOL-MYERS SQUIBB COMPANY-11789401

PATIENT
  Sex: Female

DRUGS (4)
  1. GLUCOPHAGE [Suspect]
     Indication: DIABETES MELLITUS NON-INSULIN-DEPENDENT
     Route: 048
     Dates: start: 20020301, end: 20020401
  2. VITAMIN E [Concomitant]
  3. GINKGO [Concomitant]
  4. CIRCUFLOW [Concomitant]

REACTIONS (1)
  - VISION BLURRED [None]
